FAERS Safety Report 8075724-8 (Version None)
Quarter: 2012Q1

REPORT INFORMATION
  Report Type: 
  Country: None (occurrence: None)
  Receive Date: 20120127
  Receipt Date: 20120124
  Transmission Date: 20120608
  Serious: Yes (Death)
  Sender: FDA-Public Use
  Company Number: US-PFIZER INC-2012019524

PATIENT
  Age: 59 Year
  Sex: Female

DRUGS (1)
  1. SUNITINIB MALATE [Suspect]

REACTIONS (4)
  - DIARRHOEA [None]
  - PULMONARY HYPERTENSION [None]
  - DISEASE COMPLICATION [None]
  - RESPIRATORY FAILURE [None]
